FAERS Safety Report 18131784 (Version 1)
Quarter: 2020Q3

REPORT INFORMATION
  Report Type: Other
  Country: DE (occurrence: DE)
  Receive Date: 20200810
  Receipt Date: 20200810
  Transmission Date: 20201103
  Serious: Yes (Hospitalization, Other)
  Sender: FDA-Public Use
  Company Number: DE-CELLTRION INC.-2020DE024956

PATIENT

DRUGS (9)
  1. CYCLOPHOSPHAMIDE. [Suspect]
     Active Substance: CYCLOPHOSPHAMIDE
     Dosage: 1023.75 MILLIGRAM, CYCLICAL
     Route: 065
     Dates: start: 20200520
  2. NEULASTA [Suspect]
     Active Substance: PEGFILGRASTIM
     Dosage: 6 MILLIGRAM, AFTER CHEMO, PREFILLED SYRINGE
     Route: 058
  3. RITUXIMAB (UNKNOWN) [Suspect]
     Active Substance: RITUXIMAB
     Indication: NON-HODGKIN^S LYMPHOMA
     Dosage: 731.25 MILLIGRAM, CYCLICAL (DAY 1 OF 22 DAYS)
     Route: 065
     Dates: start: 20200310, end: 20200519
  4. RITUXIMAB (UNKNOWN) [Suspect]
     Active Substance: RITUXIMAB
     Dosage: 731.25 MILLIGRAM, CYCLICAL
     Route: 065
     Dates: start: 20200519
  5. CYCLOPHOSPHAMIDE. [Suspect]
     Active Substance: CYCLOPHOSPHAMIDE
     Indication: NON-HODGKIN^S LYMPHOMA
     Dosage: 1023.75 MILLIGRAM, CYCLICAL (DAY 2)
     Route: 065
     Dates: start: 20200310, end: 20200519
  6. VINCRISTINE [Concomitant]
     Active Substance: VINCRISTINE
     Indication: NON-HODGKIN^S LYMPHOMA
     Dosage: 1 MILLIGRAM, CYCLICAL (DAY 2)
     Dates: start: 20200520
  7. DOXORUBICIN [Suspect]
     Active Substance: DOXORUBICIN
     Dosage: 68.25 MILLIGRAM, CYCLICAL
     Route: 065
     Dates: start: 20200520
  8. DOXORUBICIN [Suspect]
     Active Substance: DOXORUBICIN
     Indication: NON-HODGKIN^S LYMPHOMA
     Dosage: 68.25 MILLIGRAM, CYCLICAL (DAY 2)
     Route: 065
     Dates: start: 20200310, end: 20200519
  9. NEULASTA [Suspect]
     Active Substance: PEGFILGRASTIM
     Indication: PROPHYLAXIS
     Dosage: 6 MILLIGRAM, AFTER CHEMO, PREFILLED SYRINGE
     Route: 058
     Dates: start: 20200521

REACTIONS (6)
  - Underdose [Unknown]
  - Product use issue [Unknown]
  - Therapeutic product effect decreased [Unknown]
  - General physical health deterioration [Recovered/Resolved]
  - Leukopenia [Recovered/Resolved]
  - Pyrexia [Recovered/Resolved]

NARRATIVE: CASE EVENT DATE: 20200525
